FAERS Safety Report 7043465-1 (Version None)
Quarter: 2010Q4

REPORT INFORMATION
  Report Type: 
  Country: None (occurrence: None)
  Receive Date: 20101013
  Receipt Date: 20101007
  Transmission Date: 20110411
  Serious: Yes (Other)
  Sender: FDA-Public Use
  Company Number: US-SANOFI-AVENTIS-2010SA056070

PATIENT
  Sex: Female

DRUGS (3)
  1. SOLOSTAR [Suspect]
     Route: 058
  2. LANTUS [Suspect]
     Dosage: 15 U AM, 20 U PM
  3. CORTICOSTEROID NOS [Concomitant]
     Indication: BRONCHITIS
     Dates: start: 20100903

REACTIONS (2)
  - DEVICE MALFUNCTION [None]
  - PRODUCT QUALITY ISSUE [None]
